FAERS Safety Report 7148426-X (Version None)
Quarter: 2010Q4

REPORT INFORMATION
  Report Type: 
  Country: None (occurrence: None)
  Receive Date: 20101209
  Receipt Date: 20101129
  Transmission Date: 20110411
  Serious: Yes (Hospitalization)
  Sender: FDA-Public Use
  Company Number: US-US-EMD SERONO, INC.-7024660

PATIENT
  Sex: Male

DRUGS (21)
  1. REBIF [Suspect]
     Indication: MULTIPLE SCLEROSIS
     Route: 058
     Dates: start: 20090729, end: 20100521
  2. NOVANTRONE [Suspect]
     Indication: MULTIPLE SCLEROSIS
     Dates: start: 20040101, end: 20050101
  3. METFORMIN [Concomitant]
     Indication: TYPE 2 DIABETES MELLITUS
     Route: 048
     Dates: start: 20100214
  4. MIRALAX [Concomitant]
     Route: 048
     Dates: start: 20100214
  5. CITALOPRAM [Concomitant]
     Route: 048
     Dates: start: 20100214
  6. VITAMIN D3 [Concomitant]
     Route: 048
     Dates: start: 20100214
  7. ZANAFLEX [Concomitant]
     Route: 048
     Dates: start: 20100214
  8. TYLENOL (CAPLET) [Concomitant]
     Route: 048
     Dates: start: 20100214
  9. SOLU-MEDROL [Concomitant]
     Dates: start: 20100214
  10. SENNA [Concomitant]
     Route: 048
     Dates: start: 20100214
  11. RIMANTADINE HYDROCHLORIDE [Concomitant]
     Route: 048
     Dates: start: 20100214
  12. PROVIGIL [Concomitant]
     Route: 048
     Dates: start: 20100214
  13. NAMENDA [Concomitant]
     Route: 048
     Dates: start: 20100214
  14. MULTI-VITAMIN [Concomitant]
     Route: 048
     Dates: start: 20100214
  15. LOPID [Concomitant]
     Route: 048
     Dates: start: 20100214
  16. IMIPRAMINE [Concomitant]
     Route: 048
     Dates: start: 20100214
  17. GABAPENTIN [Concomitant]
     Route: 048
     Dates: start: 20100214
  18. ASPIRIN [Concomitant]
     Route: 048
     Dates: start: 20100214
  19. VICODIN [Concomitant]
     Route: 048
     Dates: start: 20100214
  20. BACLOFEN [Concomitant]
     Route: 048
     Dates: start: 20100214
  21. AMANTADINE HCL [Concomitant]
     Route: 048
     Dates: start: 20100214

REACTIONS (2)
  - DISTURBANCE IN ATTENTION [None]
  - NON-SMALL CELL LUNG CANCER [None]
